FAERS Safety Report 6790570-0 (Version None)
Quarter: 2010Q2

REPORT INFORMATION
  Report Type: 
  Country: None (occurrence: None)
  Receive Date: 20100624
  Receipt Date: 20100614
  Transmission Date: 20101027
  Serious: Yes (Hospitalization, Other)
  Sender: FDA-Public Use
  Company Number: DE-AMGEN-QUU420004

PATIENT
  Sex: Male

DRUGS (1)
  1. NPLATE [Suspect]
     Indication: IDIOPATHIC THROMBOCYTOPENIC PURPURA
     Dates: start: 20100401

REACTIONS (5)
  - ARTHRALGIA [None]
  - FEELING ABNORMAL [None]
  - MALAISE [None]
  - PLATELET COUNT ABNORMAL [None]
  - SWELLING [None]
